FAERS Safety Report 8772624 (Version 1)
Quarter: 2012Q4

REPORT INFORMATION
  Report Type: 
  Country: BR (occurrence: BR)
  Receive Date: 20120831
  Receipt Date: 20120831
  Transmission Date: 20130627
  Serious: Yes (Other)
  Sender: FDA-Public Use
  Company Number: BR-ELI_LILLY_AND_COMPANY-BR201207004948

PATIENT
  Sex: Female
  Weight: 54 kg

DRUGS (7)
  1. FORTEO [Suspect]
     Indication: OSTEOPOROSIS
     Dosage: 20 ug, qd
     Route: 065
     Dates: start: 201204
  2. FORTEO [Suspect]
     Dosage: UNK, unknown
     Route: 065
     Dates: start: 20120809
  3. VITAMIN D3 [Concomitant]
     Dosage: 400 IU, unknown
     Route: 065
  4. CALCIUM CARBONATE [Concomitant]
     Dosage: 500 mg, unknown
     Route: 065
  5. VITAMINE B6 [Concomitant]
     Dosage: 200 mg, unknown
     Route: 065
  6. PREGABALIN [Concomitant]
     Dosage: 75 mg, qd
     Route: 065
  7. VITAMIN B12 [Concomitant]
     Dosage: UNK, other
     Route: 065

REACTIONS (2)
  - Tendon rupture [Recovering/Resolving]
  - Alopecia [Recovered/Resolved]
